FAERS Safety Report 6384611-2 (Version None)
Quarter: 2009Q4

REPORT INFORMATION
  Report Type: 
  Country: None (occurrence: None)
  Receive Date: 20091001
  Receipt Date: 20090919
  Transmission Date: 20100525
  Serious: Yes (Hospitalization)
  Sender: FDA-Public Use
  Company Number: PHEH2009US11329

PATIENT
  Sex: Female

DRUGS (1)
  1. EXJADE [Suspect]
     Dosage: 1000 MG, QD
     Route: 048

REACTIONS (2)
  - PAIN IN EXTREMITY [None]
  - WHITE BLOOD CELL COUNT INCREASED [None]
